FAERS Safety Report 9666215 (Version 1)
Quarter: 2013Q4

REPORT INFORMATION
  Report Type: Spontaneous
  Country: US (occurrence: US)
  Receive Date: 20131104
  Receipt Date: 20131104
  Transmission Date: 20140711
  Serious: Yes (Other)
  Sender: FDA-Public Use
  Company Number: US-BIOGENIDEC-2013BI102572

PATIENT
  Age: 48 Year
  Sex: Female

DRUGS (1)
  1. TECFIDERA [Suspect]
     Indication: MULTIPLE SCLEROSIS
     Route: 048
     Dates: start: 201309, end: 20131022

REACTIONS (4)
  - Oesophageal carcinoma [Not Recovered/Not Resolved]
  - Haemoglobin decreased [Unknown]
  - Oesophageal disorder [Unknown]
  - Alopecia [Unknown]
